FAERS Safety Report 17973739 (Version 1)
Quarter: 2020Q3

REPORT INFORMATION
  Report Type: Spontaneous
  Country: SE (occurrence: SE)
  Receive Date: 20200702
  Receipt Date: 20200702
  Transmission Date: 20201103
  Serious: Yes (Other)
  Sender: FDA-Public Use
  Company Number: SE-TEVA-2020-SE-1792978

PATIENT
  Age: 53 Year
  Sex: Male
  Weight: 132 kg

DRUGS (9)
  1. AMLODIPINE [Concomitant]
     Active Substance: AMLODIPINE BESYLATE
  2. ALLOPURINOL. [Concomitant]
     Active Substance: ALLOPURINOL
  3. LEVAXIN [Concomitant]
     Active Substance: LEVOTHYROXINE SODIUM
     Dates: start: 19960201
  4. SPIRONOLACTONE. [Concomitant]
     Active Substance: SPIRONOLACTONE
  5. VENLAFAXINE [Suspect]
     Active Substance: VENLAFAXINE HYDROCHLORIDE
     Indication: APATHY
  6. VENLAFAXINE [Suspect]
     Active Substance: VENLAFAXINE HYDROCHLORIDE
     Indication: DEPRESSION
     Dosage: ESCALATION TO 4X75MG DAILY
     Route: 065
     Dates: start: 2019, end: 2020
  7. METFORMIN [Concomitant]
     Active Substance: METFORMIN HYDROCHLORIDE
     Dates: start: 20191219
  8. ATENOLOL. [Concomitant]
     Active Substance: ATENOLOL
  9. CANDESARTAN. [Concomitant]
     Active Substance: CANDESARTAN

REACTIONS (8)
  - Condition aggravated [Recovered/Resolved with Sequelae]
  - Depersonalisation/derealisation disorder [Recovered/Resolved]
  - Sexual dysfunction [Recovered/Resolved with Sequelae]
  - Promiscuity [Recovered/Resolved]
  - Indifference [Recovered/Resolved]
  - Anorgasmia [Recovered/Resolved with Sequelae]
  - Impulse-control disorder [Recovered/Resolved]
  - Erectile dysfunction [Recovered/Resolved with Sequelae]

NARRATIVE: CASE EVENT DATE: 2020
